FAERS Safety Report 24295850 (Version 1)
Quarter: 2024Q3

REPORT INFORMATION
  Report Type: Spontaneous
  Country: US (occurrence: US)
  Receive Date: 20240908
  Receipt Date: 20240908
  Transmission Date: 20241016
  Serious: No
  Sender: JOHNSON AND JOHNSON
  Company Number: US-JNJFOC-20240859870

PATIENT
  Age: 57 Year
  Sex: Female

DRUGS (2)
  1. TYLENOL [Suspect]
     Active Substance: ACETAMINOPHEN
     Indication: Pain
     Dosage: WEEKLY TWICE A DAY
     Route: 065
     Dates: start: 202310
  2. DICLOFENAC [Suspect]
     Active Substance: DICLOFENAC
     Indication: Pain
     Dosage: WEEKLY TWICE A DAY
     Route: 065
     Dates: start: 202310

REACTIONS (3)
  - Weight decreased [Unknown]
  - Inappropriate schedule of product administration [Unknown]
  - Therapy cessation [Unknown]
